FAERS Safety Report 7893243-6 (Version None)
Quarter: 2011Q4

REPORT INFORMATION
  Report Type: 
  Country: None (occurrence: None)
  Receive Date: 20111104
  Receipt Date: 20111102
  Transmission Date: 20120403
  Serious: Yes (Death)
  Sender: FDA-Public Use
  Company Number: PHHY2011NL87572

PATIENT
  Sex: Male

DRUGS (10)
  1. MELOXICAM [Concomitant]
  2. ACETAMINOPHEN [Concomitant]
  3. ZOMETA [Suspect]
     Indication: LUNG CANCER METASTATIC
     Dosage: 4 MG/5 ML 1X PER 21 DAYS
     Dates: start: 20110909
  4. ZOMETA [Suspect]
     Dosage: 4 MG/5 ML 1X PER 21 DAYS
     Dates: start: 20111021
  5. ZOMETA [Suspect]
     Dosage: 4 MG/5 ML 1X PER 21 DAYS
     Dates: start: 20111003
  6. COTRIM [Concomitant]
  7. RADIATION THERAPY [Concomitant]
  8. CODEINE PHOSPHATE [Concomitant]
  9. ZOFRAN [Concomitant]
  10. OXYCONTIN [Concomitant]

REACTIONS (2)
  - DEATH [None]
  - MALAISE [None]
